FAERS Safety Report 8065537 (Version 4)
Quarter: 2014Q2

REPORT INFORMATION
  Report Type: Spontaneous
  Country: JP (occurrence: JP)
  Receive Date: 20110802
  Receipt Date: 20140529
  Transmission Date: 20141212
  Serious: Yes (Other)
  Sender: FDA-Public Use
  Company Number: PHHY2011JP67173

PATIENT
  Age: 18 Year
  Sex: Female

DRUGS (4)
  1. NILOTINIB [Suspect]
     Indication: ACUTE LYMPHOCYTIC LEUKAEMIA
     Dosage: 800 MG, DAILY
     Route: 048
  2. NILOTINIB [Suspect]
     Dosage: 400 MG, DAILY
     Route: 048
  3. BAKTAR [Concomitant]
     Route: 048
  4. MUCODYNE [Concomitant]

REACTIONS (4)
  - Blood creatine phosphokinase increased [Recovered/Resolved]
  - Hepatic enzyme increased [Unknown]
  - Headache [Unknown]
  - Malaise [Unknown]
